FAERS Safety Report 4621900-3 (Version None)
Quarter: 2005Q1

REPORT INFORMATION
  Report Type: 
  Country: None (occurrence: None)
  Receive Date: 20050329
  Receipt Date: 20050328
  Transmission Date: 20050727
  Serious: Yes (Hospitalization)
  Sender: FDA-Public Use
  Company Number: US-GLAXOSMITHKLINE-A0551476A

PATIENT
  Age: 83 Year
  Sex: Male

DRUGS (1)
  1. FLONASE [Suspect]
     Indication: POSTNASAL DRIP
     Route: 045
     Dates: start: 20020301

REACTIONS (1)
  - JOINT SWELLING [None]
